FAERS Safety Report 23782709 (Version 1)
Quarter: 2024Q2

REPORT INFORMATION
  Report Type: Spontaneous
  Country: US (occurrence: US)
  Receive Date: 20240425
  Receipt Date: 20240425
  Transmission Date: 20240715
  Serious: Yes (Other)
  Sender: FDA-Public Use
  Company Number: US-ABBVIE-5733616

PATIENT
  Sex: Female

DRUGS (1)
  1. REFRESH OPTIVE ADVANCED [Suspect]
     Active Substance: CARBOXYMETHYLCELLULOSE SODIUM\GLYCERIN\POLYSORBATE 80
     Indication: Product used for unknown indication
     Dosage: GLYCERIN 10MG/ML;POLY 80 5MG/ML;CMC 5MG/ML SOL MD?START DATE TEXT: 10 TO 15 YEARS AGO
     Route: 047
     Dates: start: 2009

REACTIONS (2)
  - Macular degeneration [Unknown]
  - Blepharospasm [Unknown]
